FAERS Safety Report 15362941 (Version 2)
Quarter: 2018Q3

REPORT INFORMATION
  Report Type: Spontaneous
  Country: KE (occurrence: KE)
  Receive Date: 20180907
  Receipt Date: 20180920
  Transmission Date: 20181010
  Serious: Yes (Hospitalization, Other)
  Sender: FDA-Public Use
  Company Number: KE-JNJFOC-20180906425

PATIENT

DRUGS (2)
  1. XARELTO [Suspect]
     Active Substance: RIVAROXABAN
     Indication: PRODUCT USED FOR UNKNOWN INDICATION
     Route: 048
  2. CLEXANE [Concomitant]
     Active Substance: ENOXAPARIN SODIUM
     Route: 048

REACTIONS (5)
  - Adverse event [Unknown]
  - Incorrect dosage administered [Unknown]
  - Peripheral artery aneurysm [Unknown]
  - Oesophageal carcinoma [Unknown]
  - Off label use [Unknown]
